FAERS Safety Report 5024296-0 (Version None)
Quarter: 2006Q2

REPORT INFORMATION
  Report Type: 
  Country: None (occurrence: None)
  Receive Date: 20060607
  Receipt Date: 20060524
  Transmission Date: 20061013
  Serious: Yes (Hospitalization, Other)
  Sender: FDA-Public Use
  Company Number: 2006044440

PATIENT
  Sex: Female

DRUGS (2)
  1. MEDROXYPROGESTERONE ACETATE [Suspect]
     Indication: ABORTION THREATENED
     Dosage: UNKNOWN (1 TABLET DAILY); ORAL
     Route: 048
     Dates: start: 20040101, end: 20040101
  2. MEDROXYPROGESTERONE ACETATE [Suspect]
     Indication: ABORTION THREATENED
     Dosage: UNKNOWN (1 TABLET DAILY); ORAL
     Route: 048
     Dates: start: 20060101, end: 20060101

REACTIONS (4)
  - ABORTION [None]
  - DRUG EXPOSURE DURING PREGNANCY [None]
  - FOETAL GROWTH RETARDATION [None]
  - FOETAL HEART RATE ABNORMAL [None]
